FAERS Safety Report 6329296-6 (Version None)
Quarter: 2009Q3

REPORT INFORMATION
  Report Type: 
  Country: None (occurrence: None)
  Receive Date: 20090825
  Receipt Date: 20090825
  Transmission Date: 20100115
  Serious: Yes (Other)
  Sender: FDA-Public Use
  Company Number: None

PATIENT
  Age: 19 Year
  Sex: Male
  Weight: 68.0396 kg

DRUGS (2)
  1. LYRICA [Suspect]
     Indication: FIBROMYALGIA
     Dosage: 50MG  TID PO
     Route: 048
     Dates: start: 20090612, end: 20090705
  2. LYRICA [Suspect]
     Dosage: 100MG BID PO
     Route: 048
     Dates: start: 20090705, end: 20090812

REACTIONS (7)
  - ANURIA [None]
  - FLUID RETENTION [None]
  - HYPOAESTHESIA [None]
  - MIGRAINE [None]
  - NERVOUS SYSTEM DISORDER [None]
  - PARAESTHESIA [None]
  - WEIGHT INCREASED [None]
